FAERS Safety Report 21921873 (Version 5)
Quarter: 2023Q2

REPORT INFORMATION
  Report Type: Report from Study
  Country: US (occurrence: US)
  Receive Date: 20230127
  Receipt Date: 20230407
  Transmission Date: 20230721
  Serious: Yes (Hospitalization)
  Sender: FDA-Public Use
  Company Number: US-BIOGEN-2023BI01180667

PATIENT
  Sex: Female
  Weight: 58.566 kg

DRUGS (2)
  1. TYSABRI [Suspect]
     Active Substance: NATALIZUMAB
     Indication: Multiple sclerosis
     Route: 050
     Dates: start: 20110302, end: 20221115
  2. TYSABRI [Suspect]
     Active Substance: NATALIZUMAB
     Route: 050
     Dates: end: 20221115

REACTIONS (6)
  - Toxicity to various agents [Unknown]
  - Multiple sclerosis relapse [Unknown]
  - Confusional state [Unknown]
  - Memory impairment [Unknown]
  - Treatment noncompliance [Unknown]
  - Fatigue [Unknown]
